FAERS Safety Report 13008631 (Version 12)
Quarter: 2017Q4

REPORT INFORMATION
  Report Type: Spontaneous
  Country: US (occurrence: US)
  Receive Date: 20161208
  Receipt Date: 20171018
  Transmission Date: 20180320
  Serious: No
  Sender: FDA-Public Use
  Company Number: US-PFIZER INC-2016526023

PATIENT
  Age: 64 Year
  Sex: Female
  Weight: 55 kg

DRUGS (11)
  1. SUTENT [Suspect]
     Active Substance: SUNITINIB MALATE
     Indication: GASTROINTESTINAL STROMAL TUMOUR
     Dosage: 37.5 MG, DAILY (TAKE 12.5 MG WITH 25 MG TABS. TOTAL DOSE 37.5 MG DAILY)
     Route: 048
     Dates: start: 20161101
  2. LEVOTHYROXINE. [Concomitant]
     Active Substance: LEVOTHYROXINE
     Dosage: 100 UG, UNK
  3. RECLAST [Concomitant]
     Active Substance: ZOLEDRONIC ACID
     Indication: SUPPORTIVE CARE
     Dosage: 5 MG, UNK (YEARLY)
     Route: 042
     Dates: start: 20151119
  4. LEVOTHYROXINE. [Concomitant]
     Active Substance: LEVOTHYROXINE
     Dosage: 88 UG, UNK
  5. ZOLEDRONIC [Concomitant]
     Active Substance: ZOLEDRONIC ACID
     Dosage: UNK
     Route: 042
  6. LEVOTHYROXINE. [Concomitant]
     Active Substance: LEVOTHYROXINE
     Dosage: 100 UG, UNK
  7. CALCIUM [Concomitant]
     Active Substance: CALCIUM
     Dosage: UNK
  8. SUTENT [Suspect]
     Active Substance: SUNITINIB MALATE
     Dosage: 37.5 MG, CYCLIC (28 DAYS ON/14 DAYS OFF)
     Route: 048
     Dates: start: 20161115
  9. LEVOTHYROXINE. [Concomitant]
     Active Substance: LEVOTHYROXINE
     Dosage: 112 UG, UNK
  10. FERROUS SULFATE. [Concomitant]
     Active Substance: FERROUS SULFATE
     Dosage: UNK
  11. PRILOSEC [Concomitant]
     Active Substance: OMEPRAZOLE MAGNESIUM
     Dosage: UNK

REACTIONS (20)
  - Diarrhoea [Recovered/Resolved]
  - Abdominal pain upper [Unknown]
  - Headache [Recovered/Resolved]
  - Fatigue [Not Recovered/Not Resolved]
  - Dry mouth [Not Recovered/Not Resolved]
  - Oral pain [Recovered/Resolved]
  - Decreased appetite [Not Recovered/Not Resolved]
  - Skin disorder [Recovering/Resolving]
  - Cystitis [Recovered/Resolved]
  - Temperature intolerance [Recovering/Resolving]
  - Dysgeusia [Unknown]
  - Ageusia [Recovered/Resolved]
  - Thyroid function test abnormal [Not Recovered/Not Resolved]
  - Dizziness [Recovered/Resolved]
  - Urinary tract infection [Recovered/Resolved]
  - Feeling abnormal [Not Recovered/Not Resolved]
  - Rash [Unknown]
  - Pain in extremity [Unknown]
  - Palmar-plantar erythrodysaesthesia syndrome [Unknown]
  - Weight decreased [Recovered/Resolved]

NARRATIVE: CASE EVENT DATE: 201611
